FAERS Safety Report 19591554 (Version 1)
Quarter: 2021Q3

REPORT INFORMATION
  Report Type: Spontaneous
  Country: DE (occurrence: DE)
  Receive Date: 20210721
  Receipt Date: 20210721
  Transmission Date: 20211014
  Serious: Yes (Hospitalization)
  Sender: FDA-Public Use
  Company Number: NVSC2021DE154423

PATIENT
  Sex: Female

DRUGS (1)
  1. BEOVU [Suspect]
     Active Substance: BROLUCIZUMAB-DBLL
     Indication: NEOVASCULAR AGE-RELATED MACULAR DEGENERATION
     Dosage: UNK
     Route: 031
     Dates: end: 20210507

REACTIONS (6)
  - Cerebral artery occlusion [Unknown]
  - Retinal vasculitis [Unknown]
  - Vitreous disorder [Unknown]
  - Visual impairment [Unknown]
  - Keratic precipitates [Unknown]
  - Disease progression [Unknown]

NARRATIVE: CASE EVENT DATE: 20210707
